FAERS Safety Report 8770604 (Version 2)
Quarter: 2012Q4

REPORT INFORMATION
  Report Type: 
  Country: US (occurrence: US)
  Receive Date: 20120906
  Receipt Date: 20120925
  Transmission Date: 20130627
  Serious: Yes (Death)
  Sender: FDA-Public Use
  Company Number: US-ROCHE-1117196

PATIENT
  Age: 38 Year
  Sex: Female
  Weight: 70 kg

DRUGS (5)
  1. ACTEMRA [Suspect]
     Indication: RHEUMATOID ARTHRITIS
     Route: 041
     Dates: start: 20110205, end: 20110426
  2. NAPROXEN [Concomitant]
     Route: 065
  3. ASA [Concomitant]
     Route: 065
  4. NEXIUM [Concomitant]
     Route: 065
  5. LASIX [Concomitant]
     Route: 065

REACTIONS (2)
  - Gastrointestinal perforation [Fatal]
  - Death [Fatal]
